FAERS Safety Report 4620067-5 (Version None)
Quarter: 2005Q1

REPORT INFORMATION
  Report Type: 
  Country: None (occurrence: None)
  Receive Date: 20050324
  Receipt Date: 20050316
  Transmission Date: 20050727
  Serious: Yes (Other)
  Sender: FDA-Public Use
  Company Number: 2005035020

PATIENT
  Age: 45 Year
  Sex: Female
  Weight: 55 kg

DRUGS (8)
  1. AMLODIPINE [Suspect]
     Indication: ESSENTIAL HYPERTENSION
     Dosage: 1 IN 1 D, ORAL
     Route: 048
     Dates: start: 20050111, end: 20050201
  2. CONTRAST MEDIA (CONTRAST MEDIA) [Suspect]
     Indication: X-RAY
  3. QUINAPRIL HCL [Concomitant]
  4. LEVOCETIRIZINE       (LEVOCETIRIZINE) [Concomitant]
  5. AMOXICILLIN [Concomitant]
  6. BENDROFLUMETHIAZIDE             (BENDROFLUMETHIAZIDE) [Concomitant]
  7. SALBUTAMOL SULFATE (SALBUTAMOL SULFATE) [Concomitant]
  8. PARAMOL-118 (DIHYDROCODEINE BITARTRATE, PARACETAMOL) [Concomitant]

REACTIONS (6)
  - CONTRAST MEDIA REACTION [None]
  - DYSGEUSIA [None]
  - FEELING ABNORMAL [None]
  - HEADACHE [None]
  - PERIPHERAL SENSORY NEUROPATHY [None]
  - PITTING OEDEMA [None]
